FAERS Safety Report 25392017 (Version 1)
Quarter: 2025Q2

REPORT INFORMATION
  Report Type: Report from Study
  Country: US (occurrence: US)
  Receive Date: 20250603
  Receipt Date: 20250603
  Transmission Date: 20250716
  Serious: No
  Sender: IPSEN BIOPHARMACEUTICALS, INC.
  Company Number: US-IPSEN Group, Research and Development-2024-13895

PATIENT
  Age: 22 Year
  Sex: Female

DRUGS (1)
  1. SOMATULINE DEPOT [Suspect]
     Active Substance: LANREOTIDE ACETATE
     Indication: Acromegaly
     Dosage: DEEP SUBCUTANEOUS INJECTION
     Route: 058

REACTIONS (7)
  - Abdominal pain upper [Unknown]
  - Depression [Unknown]
  - Abdominal pain [Unknown]
  - Nausea [Unknown]
  - Swelling face [Unknown]
  - Peripheral swelling [Unknown]
  - Product ineffective [Unknown]

NARRATIVE: CASE EVENT DATE: 20240710
